FAERS Safety Report 4761959-6 (Version None)
Quarter: 2005Q3

REPORT INFORMATION
  Report Type: 
  Country: None (occurrence: None)
  Receive Date: 20050831
  Receipt Date: 20050531
  Transmission Date: 20060218
  Serious: No
  Sender: FDA-Public Use
  Company Number: PHEH2005US06090

PATIENT
  Age: 74 Year
  Sex: Female

DRUGS (5)
  1. ENABLEX [Suspect]
     Indication: POLLAKIURIA
     Dosage: 7.5MG, QD
  2. NEXIUM [Concomitant]
  3. ATACAND [Concomitant]
  4. ESZOPICLONE (ESZOPICLONE) [Concomitant]
  5. NEURONTIN [Concomitant]

REACTIONS (1)
  - URINARY INCONTINENCE [None]
